FAERS Safety Report 7372574-2 (Version None)
Quarter: 2011Q1

REPORT INFORMATION
  Report Type: 
  Country: None (occurrence: None)
  Receive Date: 20110324
  Receipt Date: 20110315
  Transmission Date: 20110831
  Serious: Yes (Hospitalization, Disabling, Other)
  Sender: FDA-Public Use
  Company Number: US-MERCK-1008USA01465

PATIENT
  Age: 54 Year
  Sex: Female
  Weight: 49 kg

DRUGS (3)
  1. SYNTHROID [Concomitant]
     Route: 065
     Dates: start: 19940101
  2. FOSAMAX [Suspect]
     Indication: OSTEOPOROSIS
     Route: 048
     Dates: start: 20021029, end: 20060901
  3. FOSAMAX [Suspect]
     Indication: OSTEOPOROSIS PROPHYLAXIS
     Route: 048
     Dates: start: 20021029, end: 20060901

REACTIONS (36)
  - SKIN CANCER [None]
  - PARAESTHESIA [None]
  - ANAEMIA [None]
  - PRIMARY SEQUESTRUM [None]
  - LEUKOPENIA [None]
  - IMPAIRED HEALING [None]
  - UTERINE DISORDER [None]
  - DEGENERATION OF UTERINE LEIOMYOMA [None]
  - FOOT FRACTURE [None]
  - POLYARTHRITIS [None]
  - OSTEOPENIA [None]
  - TOOTH FRACTURE [None]
  - COAGULOPATHY [None]
  - MITRAL VALVE INCOMPETENCE [None]
  - MITRAL VALVE PROLAPSE [None]
  - OSTEONECROSIS OF JAW [None]
  - CONSTIPATION [None]
  - PALPITATIONS [None]
  - BONE MARROW DISORDER [None]
  - FACIAL BONES FRACTURE [None]
  - PULMONARY VALVE INCOMPETENCE [None]
  - TRICUSPID VALVE INCOMPETENCE [None]
  - TOOTH DISORDER [None]
  - HYPERHIDROSIS [None]
  - RENAL CYST [None]
  - HAEMATOLOGY TEST ABNORMAL [None]
  - DIASTOLIC DYSFUNCTION [None]
  - CERVICAL DYSPLASIA [None]
  - IRRITABLE BOWEL SYNDROME [None]
  - NAUSEA [None]
  - PAIN IN EXTREMITY [None]
  - ORAL INFECTION [None]
  - INJURY [None]
  - RAYNAUD'S PHENOMENON [None]
  - PERIODONTITIS [None]
  - TOOTH ABSCESS [None]
